FAERS Safety Report 9787481 (Version 3)
Quarter: 2014Q1

REPORT INFORMATION
  Report Type: Report from Study
  Country: CA (occurrence: CA)
  Receive Date: 20131230
  Receipt Date: 20140224
  Transmission Date: 20141002
  Serious: Yes (Other)
  Sender: FDA-Public Use
  Company Number: CA-ROCHE-1324786

PATIENT
  Age: 59 Year
  Sex: Female
  Weight: 58 kg

DRUGS (5)
  1. HERCEPTIN [Suspect]
     Indication: BREAST CANCER METASTATIC
     Route: 042
     Dates: start: 2008
  2. KADCYLA [Suspect]
     Indication: BREAST CANCER METASTATIC
     Route: 042
     Dates: start: 20140128
  3. TAXOL [Suspect]
     Indication: PRODUCT USED FOR UNKNOWN INDICATION
     Dosage: UNKNOWN DOSE
     Route: 065
  4. DALTEPARIN [Concomitant]
  5. DENOSUMAB [Concomitant]

REACTIONS (6)
  - Macular hole [Unknown]
  - Eye operation [Unknown]
  - Weight decreased [Unknown]
  - Blood bilirubin increased [Not Recovered/Not Resolved]
  - Catheter site haemorrhage [Unknown]
  - Nausea [Unknown]
